FAERS Safety Report 15923417 (Version 1)
Quarter: 2019Q1

REPORT INFORMATION
  Report Type: Spontaneous
  Country: US (occurrence: US)
  Receive Date: 20190115
  Receipt Date: 20190115
  Transmission Date: 20190417
  Serious: No
  Sender: FDA-Public Use
  Company Number: None

PATIENT
  Age: 78 Year
  Sex: Female

DRUGS (1)
  1. CAPECITABINE TAB [Suspect]
     Active Substance: CAPECITABINE
     Route: 048
     Dates: start: 20181123

REACTIONS (4)
  - Palmar-plantar erythrodysaesthesia syndrome [None]
  - Headache [None]
  - Nausea [None]
  - Rash [None]

NARRATIVE: CASE EVENT DATE: 20190114
